FAERS Safety Report 5126601-3 (Version None)
Quarter: 2006Q4

REPORT INFORMATION
  Report Type: 
  Country: None (occurrence: None)
  Receive Date: 20061012
  Receipt Date: 20061012
  Transmission Date: 20070319
  Serious: Yes (Other)
  Sender: FDA-Public Use
  Company Number: None

PATIENT
  Sex: Male
  Weight: 88.4514 kg

DRUGS (4)
  1. RISPERDAL [Suspect]
     Indication: ATTENTION DEFICIT/HYPERACTIVITY DISORDER
     Dosage: .75 TWICE A DAY PO
     Route: 048
     Dates: start: 20000701, end: 20010530
  2. RISPERDAL [Suspect]
     Indication: OPPOSITIONAL DEFIANT DISORDER
     Dosage: .75 TWICE A DAY PO
     Route: 048
     Dates: start: 20000701, end: 20010530
  3. TENEX [Concomitant]
  4. GUANFACINE [Concomitant]

REACTIONS (4)
  - AGGRESSION [None]
  - AGITATION [None]
  - TARDIVE DYSKINESIA [None]
  - WEIGHT INCREASED [None]
